FAERS Safety Report 6371958-9 (Version None)
Quarter: 2009Q3

REPORT INFORMATION
  Report Type: 
  Country: None (occurrence: None)
  Receive Date: 20090917
  Receipt Date: 20090904
  Transmission Date: 20100115
  Serious: Yes (Hospitalization, Other)
  Sender: FDA-Public Use
  Company Number: ADR15522009

PATIENT
  Age: 68 Year
  Sex: Female

DRUGS (10)
  1. CITALOPRAM HYDROBROMIDE [Suspect]
     Indication: DEPRESSION
     Dosage: 20 MG BID;ORAL USE
     Route: 048
     Dates: end: 20081012
  2. ESOMEPRAZOLE [Concomitant]
  3. ZOTON [Concomitant]
  4. CO-DYDRAMOL 1 DF [Concomitant]
  5. NIFEDIPINE [Concomitant]
  6. PERINDOPRIL 2 MG [Concomitant]
  7. ALBUTEROL [Concomitant]
  8. SERETIDE 2 DF [Concomitant]
  9. VITAMIN B COMPLEX 2 DF [Concomitant]
  10. ZOPICLONE 3.75 MG [Concomitant]

REACTIONS (3)
  - CHEST PAIN [None]
  - CHRONIC OBSTRUCTIVE PULMONARY DISEASE [None]
  - HYPONATRAEMIA [None]
